FAERS Safety Report 6174982-4 (Version None)
Quarter: 2009Q2

REPORT INFORMATION
  Report Type: 
  Country: None (occurrence: None)
  Receive Date: 20090430
  Receipt Date: 20081105
  Transmission Date: 20091009
  Serious: No
  Sender: FDA-Public Use
  Company Number: US-ASTRAZENECA-2008UW24734

PATIENT
  Age: 59 Year
  Sex: Female
  Weight: 68 kg

DRUGS (4)
  1. NEXIUM [Suspect]
     Indication: REFLUX OESOPHAGITIS
     Route: 048
     Dates: start: 20000101
  2. LISINOPRIL [Suspect]
     Route: 065
  3. DARVOCET [Concomitant]
  4. TOPROL (TIME RELEASE) [Concomitant]
     Route: 048

REACTIONS (5)
  - COUGH [None]
  - DYSPNOEA [None]
  - NAUSEA [None]
  - PALPITATIONS [None]
  - TREATMENT NONCOMPLIANCE [None]
